FAERS Safety Report 4642243-8 (Version None)
Quarter: 2005Q2

REPORT INFORMATION
  Report Type: 
  Country: None (occurrence: None)
  Receive Date: 20050422
  Receipt Date: 20050113
  Transmission Date: 20051028
  Serious: Yes (Hospitalization)
  Sender: FDA-Public Use
  Company Number: US-2005-BP-00564BP

PATIENT
  Sex: Female

DRUGS (2)
  1. CATAPRES [Suspect]
     Indication: HYPERTENSION
     Route: 048
     Dates: start: 20040322, end: 20050107
  2. DIOVAN [Concomitant]

REACTIONS (6)
  - ASTHENIA [None]
  - CARDIAC PACEMAKER INSERTION [None]
  - DIABETES MELLITUS [None]
  - HEART RATE ABNORMAL [None]
  - PAIN [None]
  - PANCREATITIS [None]
